FAERS Safety Report 5805978-7 (Version None)
Quarter: 2008Q3

REPORT INFORMATION
  Report Type: 
  Country: None (occurrence: None)
  Receive Date: 20080710
  Receipt Date: 20080707
  Transmission Date: 20090109
  Serious: Yes (Death)
  Sender: FDA-Public Use
  Company Number: A0736266A

PATIENT
  Age: 55 Year
  Sex: Female

DRUGS (4)
  1. COREG [Suspect]
     Indication: DRUG USE FOR UNKNOWN INDICATION
     Dosage: 6.25MG PER DAY
     Route: 048
     Dates: start: 20060101
  2. ZANTAC [Suspect]
     Dosage: 300MG TWICE PER DAY
     Route: 048
  3. K-DUR [Concomitant]
  4. LASIX [Concomitant]

REACTIONS (1)
  - DEATH [None]
